FAERS Safety Report 10888204 (Version 2)
Quarter: 2015Q3

REPORT INFORMATION
  Report Type: Spontaneous
  Country: NL (occurrence: NL)
  Receive Date: 20150304
  Receipt Date: 20150922
  Transmission Date: 20151125
  Serious: Yes (Death, Life-Threatening)
  Sender: FDA-Public Use
  Company Number: PHHY2015NL023386

PATIENT
  Sex: Female

DRUGS (1)
  1. ESTRADIOL SANDOZ [Suspect]
     Active Substance: ESTRADIOL
     Indication: PRODUCT USED FOR UNKNOWN INDICATION
     Dosage: 50 UG, QD (50 MCG/24 HOURS)
     Route: 065
     Dates: start: 2012, end: 20141222

REACTIONS (3)
  - Metastatic neoplasm [Fatal]
  - Abdominal discomfort [Unknown]
  - Fatigue [Unknown]

NARRATIVE: CASE EVENT DATE: 20141220
